FAERS Safety Report 10238886 (Version 1)
Quarter: 2014Q2

REPORT INFORMATION
  Report Type: Spontaneous
  Country: CH (occurrence: None)
  Receive Date: 20140612
  Receipt Date: 20140612
  Transmission Date: 20141212
  Serious: Yes (Hospitalization)
  Sender: FDA-Public Use
  Company Number: 20140325

PATIENT
  Age: 34 Year
  Sex: Female

DRUGS (1)
  1. VENOFER (IRON SUCROSE INJECTION-VIFOR) (IRON SUCROSE INJECTION) 20 MG/ML [Suspect]
     Indication: ANAEMIA
     Dosage: 3 DF, SECOND INFUSION
     Route: 041
     Dates: start: 20140402, end: 20140404

REACTIONS (1)
  - Phlebitis superficial [None]
